FAERS Safety Report 7106477-5 (Version None)
Quarter: 2010Q4

REPORT INFORMATION
  Report Type: 
  Country: None (occurrence: None)
  Receive Date: 20101116
  Receipt Date: 20101108
  Transmission Date: 20110411
  Serious: Yes (Death, Hospitalization, Other)
  Sender: FDA-Public Use
  Company Number: US-PFIZER INC-2010122921

PATIENT
  Sex: Male

DRUGS (2)
  1. SUTENT [Suspect]
     Indication: GASTROINTESTINAL STROMAL TUMOUR
     Dosage: 50 MG, 1X/DAY, 4 WEEKS ON/2 WEEKS OFF
  2. GLEEVEC [Concomitant]
     Dosage: 400 MG, 1X/DAY
     Dates: start: 20080801

REACTIONS (7)
  - ANAEMIA [None]
  - CEREBROVASCULAR ACCIDENT [None]
  - FALL [None]
  - GASTROINTESTINAL HAEMORRHAGE [None]
  - HIP FRACTURE [None]
  - HUMERUS FRACTURE [None]
  - PNEUMONIA [None]
